FAERS Safety Report 17774266 (Version 1)
Quarter: 2020Q2

REPORT INFORMATION
  Report Type: Spontaneous
  Country: DE (occurrence: DE)
  Receive Date: 20200513
  Receipt Date: 20200513
  Transmission Date: 20200714
  Serious: Yes (Other)
  Sender: FDA-Public Use
  Company Number: DE-US-PROVELL PHARMACEUTICALS LLC-E2B_90077311

PATIENT
  Sex: Female

DRUGS (2)
  1. EUTHYROX [Suspect]
     Active Substance: LEVOTHYROXINE SODIUM
     Dosage: NEW FORMULATION
     Dates: start: 2019
  2. EUTHYROX [Suspect]
     Active Substance: LEVOTHYROXINE SODIUM
     Indication: POST PROCEDURAL HYPOTHYROIDISM
     Dosage: UNIT DOSE: 100 (UNSPECIFIED UNITS) OLD FORMULATION

REACTIONS (11)
  - Constipation [Unknown]
  - Feeling cold [Unknown]
  - Depression [Unknown]
  - Hypothyroidism [Unknown]
  - Weight increased [Unknown]
  - Thyroxine increased [Unknown]
  - Hypertension [Unknown]
  - Tri-iodothyronine increased [Unknown]
  - Hip surgery [Unknown]
  - Blood thyroid stimulating hormone increased [Unknown]
  - Fatigue [Unknown]

NARRATIVE: CASE EVENT DATE: 201909
